FAERS Safety Report 14992612 (Version 4)
Quarter: 2019Q2

REPORT INFORMATION
  Report Type: Spontaneous
  Country: PT (occurrence: PT)
  Receive Date: 20180609
  Receipt Date: 20190523
  Transmission Date: 20190711
  Serious: Yes (Death, Hospitalization, Other)
  Sender: FDA-Public Use
  Company Number: PT-AUROBINDO-AUR-APL-2017-43397

PATIENT

DRUGS (5)
  1. RILUZOLE. [Suspect]
     Active Substance: RILUZOLE
     Indication: AMYOTROPHIC LATERAL SCLEROSIS
     Dosage: 100 MG, DAILY
     Route: 065
  2. RAMIPRIL. [Suspect]
     Active Substance: RAMIPRIL
     Indication: HYPERTENSION
     Dosage: UNK
     Route: 065
  3. RILUZOLE. [Suspect]
     Active Substance: RILUZOLE
     Dosage: 50 MILLIGRAM, ONCE A DAY
     Route: 065
  4. RILUZOLE. [Suspect]
     Active Substance: RILUZOLE
     Dosage: 100 MILLIGRAM
     Route: 065
  5. RILUZOLE. [Suspect]
     Active Substance: RILUZOLE
     Dosage: 50 MILLIGRAM, TWO TIMES A DAY (50 MG, BID)
     Route: 065

REACTIONS (9)
  - Portal vein thrombosis [Fatal]
  - Vomiting [Fatal]
  - Portal hypertension [Fatal]
  - Pseudocyst [Fatal]
  - Drug interaction [Fatal]
  - Pancreatitis acute [Fatal]
  - Pancreatitis necrotising [Fatal]
  - Abdominal pain [Fatal]
  - Nausea [Fatal]
